FAERS Safety Report 4657962-7 (Version None)
Quarter: 2005Q2

REPORT INFORMATION
  Report Type: 
  Country: None (occurrence: None)
  Receive Date: 20050510
  Receipt Date: 20050418
  Transmission Date: 20051028
  Serious: Yes (Other)
  Sender: FDA-Public Use
  Company Number: 2005SE02448

PATIENT
  Sex: Female

DRUGS (1)
  1. NEXIUM [Suspect]
     Indication: GASTROOESOPHAGEAL REFLUX DISEASE
     Route: 048
     Dates: start: 20050210, end: 20050416

REACTIONS (3)
  - CONJUNCTIVITIS [None]
  - PHOTOSENSITIVITY REACTION [None]
  - RASH PRURITIC [None]
